FAERS Safety Report 7189934-5 (Version None)
Quarter: 2010Q4

REPORT INFORMATION
  Report Type: 
  Country: None (occurrence: None)
  Receive Date: 20101123
  Receipt Date: 20100820
  Transmission Date: 20110411
  Serious: No
  Sender: FDA-Public Use
  Company Number: 017567

PATIENT
  Sex: Female
  Weight: 66.1 kg

DRUGS (12)
  1. CIMZIA [Suspect]
     Indication: RHEUMATOID ARTHRITIS
     Dosage: (400 MG 1X/2 WEEKS SUBCUTANEOUS)
     Route: 058
     Dates: start: 20100401, end: 20100604
  2. PLAQUENIL [Concomitant]
  3. METHOTREXATE [Concomitant]
  4. FOLIC ACID [Concomitant]
  5. CALTRATE +D [Concomitant]
  6. GLUCOSAMINE [Concomitant]
  7. LOVAZA [Concomitant]
  8. ACTONEL [Concomitant]
  9. AMBIEN CR [Concomitant]
  10. ZYRTEC [Concomitant]
  11. WELLBUTRIN [Concomitant]
  12. DOXYCYCLINE [Concomitant]

REACTIONS (1)
  - INTERVERTEBRAL DISC DEGENERATION [None]
